FAERS Safety Report 12600936 (Version 1)
Quarter: 2016Q3

REPORT INFORMATION
  Report Type: Spontaneous
  Country: FR (occurrence: FR)
  Receive Date: 20160728
  Receipt Date: 20160728
  Transmission Date: 20161109
  Serious: Yes (Hospitalization)
  Sender: FDA-Public Use
  Company Number: FR-ROCHE-1802316

PATIENT
  Age: 89 Year
  Sex: Female

DRUGS (7)
  1. ROCEPHINE [Suspect]
     Active Substance: CEFTRIAXONE SODIUM
     Indication: ASTHMA
     Route: 058
     Dates: start: 20160626, end: 20160629
  2. CROMOPTIC [Concomitant]
     Active Substance: CROMOLYN SODIUM
     Route: 047
  3. PARACETAMOL [Concomitant]
     Active Substance: ACETAMINOPHEN
     Route: 065
  4. TAVANIC [Concomitant]
     Active Substance: LEVOFLOXACIN
     Route: 042
  5. SPAGULAX [Concomitant]
     Active Substance: PLANTAGO OVATA SEED
     Route: 048
  6. HALDOL [Concomitant]
     Active Substance: HALOPERIDOL
     Dosage: IN THE EVENING
     Route: 048
  7. MOPRAL [Concomitant]
     Active Substance: OMEPRAZOLE SODIUM
     Dosage: IN THE MORNING
     Route: 048

REACTIONS (3)
  - Leukocytosis [Unknown]
  - Pyrexia [Unknown]
  - Acute generalised exanthematous pustulosis [Recovering/Resolving]

NARRATIVE: CASE EVENT DATE: 20160628
